FAERS Safety Report 7922819-2 (Version None)
Quarter: 2011Q4

REPORT INFORMATION
  Report Type: 
  Country: None (occurrence: None)
  Receive Date: 20111117
  Receipt Date: 20110125
  Transmission Date: 20120403
  Serious: No
  Sender: FDA-Public Use
  Company Number: US-AMGEN-USASP2011004484

PATIENT
  Age: 65 Year
  Sex: Female

DRUGS (3)
  1. PLAQUENIL [Concomitant]
     Dosage: 2 MG, QD
     Dates: start: 19980101
  2. ENBREL [Suspect]
     Indication: RHEUMATOID ARTHRITIS
     Dosage: 25 MG, 2 TIMES/WK
     Dates: start: 20091001, end: 20110108
  3. METHOTREXATE [Concomitant]
     Dosage: 1 MG, QWK
     Dates: start: 19980101

REACTIONS (2)
  - HEPATIC ENZYME ABNORMAL [None]
  - RHEUMATOID ARTHRITIS [None]
